FAERS Safety Report 13697720 (Version 2)
Quarter: 2017Q3

REPORT INFORMATION
  Report Type: Spontaneous
  Country: NO (occurrence: NO)
  Receive Date: 20170628
  Receipt Date: 20170706
  Transmission Date: 20171127
  Serious: Yes (Other)
  Sender: FDA-Public Use
  Company Number: NO-BAUSCH-BL-2017-019894

PATIENT
  Age: 46 Year
  Sex: Female

DRUGS (9)
  1. STREPTOZOCIN [Suspect]
     Active Substance: STREPTOZOCIN
     Indication: METASTASES TO LIVER
  2. INSULIN [Concomitant]
     Active Substance: INSULIN NOS
     Indication: TYPE 1 DIABETES MELLITUS
     Route: 065
  3. FLUOROURACIL. [Suspect]
     Active Substance: FLUOROURACIL
     Indication: METASTASES TO LIVER
  4. OCTREOTIDE. [Suspect]
     Active Substance: OCTREOTIDE
     Indication: INSULINOMA
     Route: 065
  5. FLUOROURACIL. [Suspect]
     Active Substance: FLUOROURACIL
     Indication: INSULINOMA
     Route: 065
  6. FLUOROURACIL. [Suspect]
     Active Substance: FLUOROURACIL
     Indication: METASTASES TO LYMPH NODES
  7. STREPTOZOCIN [Suspect]
     Active Substance: STREPTOZOCIN
     Indication: INSULINOMA
     Dosage: FEW YEARS
     Route: 065
  8. STREPTOZOCIN [Suspect]
     Active Substance: STREPTOZOCIN
     Indication: METASTASES TO LYMPH NODES
  9. OCTREOTIDE. [Suspect]
     Active Substance: OCTREOTIDE
     Indication: METASTASES TO LIVER

REACTIONS (2)
  - Off label use [Unknown]
  - Drug-induced liver injury [Unknown]
